FAERS Safety Report 17744802 (Version 2)
Quarter: 2020Q3

REPORT INFORMATION
  Report Type: Spontaneous
  Country: US (occurrence: US)
  Receive Date: 20200505
  Receipt Date: 20200724
  Transmission Date: 20201102
  Serious: No
  Sender: FDA-Public Use
  Company Number: US-PFIZER INC-2020177164

PATIENT
  Age: 71 Year
  Sex: Female
  Weight: 88 kg

DRUGS (1)
  1. XELJANZ XR [Suspect]
     Active Substance: TOFACITINIB CITRATE
     Indication: RHEUMATOID ARTHRITIS
     Dosage: 11 MG, 1X/DAY [11 MG TAKEN ONCE DAILY IN THE MORNING BY MOUTH WITH GLASS OF WATER]
     Route: 048
     Dates: start: 2012

REACTIONS (1)
  - Memory impairment [Unknown]
